FAERS Safety Report 13598892 (Version 4)
Quarter: 2018Q2

REPORT INFORMATION
  Report Type: Report from Study
  Country: US (occurrence: US)
  Receive Date: 20170531
  Receipt Date: 20180507
  Transmission Date: 20180711
  Serious: Yes (Hospitalization)
  Sender: FDA-Public Use
  Company Number: US-PFIZER INC-2017225909

PATIENT
  Age: 10 Year
  Sex: Female
  Weight: 36 kg

DRUGS (24)
  1. DOXORUBICIN HCL [Suspect]
     Active Substance: DOXORUBICIN HYDROCHLORIDE
     Indication: ACUTE LYMPHOCYTIC LEUKAEMIA
     Dosage: 32 MG, ONCE
     Route: 042
     Dates: start: 20170823, end: 20170823
  2. INCB018424 [Suspect]
     Active Substance: RUXOLITINIB
     Indication: ACUTE LYMPHOCYTIC LEUKAEMIA
     Dosage: 25 MG, 2X/DAY
     Route: 048
     Dates: start: 20170220
  3. VINCRISTINE SULFATE. [Suspect]
     Active Substance: VINCRISTINE SULFATE
     Indication: ACUTE LYMPHOCYTIC LEUKAEMIA
     Dosage: 1.8 MG, SINGLE
     Route: 042
     Dates: start: 20170220
  4. VINCRISTINE SULFATE. [Suspect]
     Active Substance: VINCRISTINE SULFATE
     Dosage: 1.9 MG, ONCE
     Route: 042
     Dates: start: 20170823, end: 20170823
  5. CYTARABINE. [Suspect]
     Active Substance: CYTARABINE
     Dosage: 92 MG REGIMEN#2, 92 MG, QD
     Route: 042
     Dates: start: 20170412
  6. METHOTREXATE SODIUM. [Suspect]
     Active Substance: METHOTREXATE SODIUM
     Dosage: 15 MG
     Route: 037
     Dates: start: 20170123, end: 20170808
  7. METHOTREXATE SODIUM. [Suspect]
     Active Substance: METHOTREXATE SODIUM
     Dosage: 15 MG, SINGLE
     Route: 037
     Dates: start: 20170123
  8. METHOTREXATE SODIUM. [Suspect]
     Active Substance: METHOTREXATE SODIUM
     Dosage: 15 MG, SINGLE
     Route: 037
     Dates: start: 20170808
  9. PEGASPARGASE [Suspect]
     Active Substance: PEGASPARGASE
     Dosage: 3150 UNITS; REGIMEN #2, 3150 UNITS
     Route: 042
     Dates: start: 20170811
  10. MERCAPTOPURINE. [Suspect]
     Active Substance: MERCAPTOPURINE
     Dosage: TABLET; REGIMEN#2, 25 MG, QD
     Route: 048
     Dates: start: 20170515
  11. INCB018424 [Suspect]
     Active Substance: RUXOLITINIB
     Dosage: 50 MG, 2X/DAY
     Route: 048
     Dates: start: 20170815, end: 20170828
  12. CAFFEINE. [Concomitant]
     Active Substance: CAFFEINE
     Dosage: UNK
     Dates: start: 20170201
  13. METHOTREXATE SODIUM. [Suspect]
     Active Substance: METHOTREXATE SODIUM
     Dosage: 5960 MG, ONCE
     Route: 042
     Dates: start: 20170713, end: 20170714
  14. INCB018424 [Suspect]
     Active Substance: RUXOLITINIB
     Dosage: 50 MG, 2X/DAY
     Route: 048
     Dates: start: 20170913
  15. METHOTREXATE SODIUM. [Suspect]
     Active Substance: METHOTREXATE SODIUM
     Dosage: 5960 MG, ONCE
     Route: 042
     Dates: start: 20170713, end: 20170714
  16. DEXAMETHASONE. [Suspect]
     Active Substance: DEXAMETHASONE
     Indication: ACUTE LYMPHOCYTIC LEUKAEMIA
     Dosage: 6.5 MG, 2X/DAY
     Route: 048
     Dates: start: 20170823
  17. ONDANSETRON [Concomitant]
     Active Substance: ONDANSETRON
     Dosage: UNK
     Dates: start: 20170201
  18. CAFFEINE CITRATE. [Concomitant]
     Active Substance: CAFFEINE CITRATE
     Dosage: UNK
     Dates: start: 20170217
  19. METHOTREXATE SODIUM. [Suspect]
     Active Substance: METHOTREXATE SODIUM
     Dosage: 15 MG, SINGLE
     Route: 037
     Dates: start: 20170331
  20. PEGASPARGASE [Suspect]
     Active Substance: PEGASPARGASE
     Indication: ACUTE LYMPHOCYTIC LEUKAEMIA
     Dosage: 3000MG; REGIMEN #1, 3000MG, ONCE
     Route: 042
     Dates: start: 20170117
  21. CYTARABINE. [Suspect]
     Active Substance: CYTARABINE
     Indication: ACUTE LYMPHOCYTIC LEUKAEMIA
     Dosage: 92 MG, REGIMEN#1, 92MG, QD
     Route: 042
     Dates: start: 20170113
  22. METHOTREXATE SODIUM. [Suspect]
     Active Substance: METHOTREXATE SODIUM
     Indication: ACUTE LYMPHOCYTIC LEUKAEMIA
     Dosage: 15 MG
     Route: 037
     Dates: start: 20170123, end: 20170313
  23. MERCAPTOPURINE. [Suspect]
     Active Substance: MERCAPTOPURINE
     Indication: ACUTE LYMPHOCYTIC LEUKAEMIA
     Dosage: TABLET; REGIMEN #1, 25MG MONDAY-FRIDAY; 50MG SATURDAY AND SUNDAY
     Route: 048
     Dates: start: 20170424
  24. BACTRIM [Concomitant]
     Active Substance: SULFAMETHOXAZOLE\TRIMETHOPRIM
     Dosage: UNK
     Dates: start: 20170220

REACTIONS (2)
  - Febrile neutropenia [Recovered/Resolved]
  - Febrile neutropenia [Recovered/Resolved]

NARRATIVE: CASE EVENT DATE: 20170426
